FAERS Safety Report 8513971-9 (Version None)
Quarter: 2012Q3

REPORT INFORMATION
  Report Type: 
  Country: None (occurrence: None)
  Receive Date: 20120717
  Receipt Date: 20120710
  Transmission Date: 20120928
  Serious: Yes (Other)
  Sender: FDA-Public Use
  Company Number: US-NOVOPROD-355638

PATIENT
  Age: 56 Year
  Sex: Female

DRUGS (2)
  1. LANTUS [Suspect]
     Indication: DIABETES MELLITUS
     Dosage: 52-24 UNITS TWICE DAILY BASED ON BLOOD SUGARS
     Route: 058
  2. NOVOLOG [Suspect]
     Indication: DIABETES MELLITUS
     Route: 058

REACTIONS (2)
  - CONDITION AGGRAVATED [None]
  - RETINAL DETACHMENT [None]
